FAERS Safety Report 8801450 (Version 6)
Quarter: 2016Q1

REPORT INFORMATION
  Report Type: Report from Study
  Country: CA (occurrence: CA)
  Receive Date: 20120921
  Receipt Date: 20160107
  Transmission Date: 20160526
  Serious: Yes (Other)
  Sender: FDA-Public Use
  Company Number: CA-ROCHE-1123914

PATIENT
  Age: 65 Year
  Sex: Female
  Weight: 67 kg

DRUGS (4)
  1. ACTEMRA [Suspect]
     Active Substance: TOCILIZUMAB
     Dosage: UNKNOWN DOSE
     Route: 042
     Dates: start: 20080606
  2. NEXIUM [Concomitant]
     Active Substance: ESOMEPRAZOLE MAGNESIUM
  3. COVERSYL PLUS [Concomitant]
     Active Substance: INDAPAMIDE\PERINDOPRIL
     Route: 065
  4. ACTEMRA [Suspect]
     Active Substance: TOCILIZUMAB
     Indication: RHEUMATOID ARTHRITIS
     Dosage: 1ST RPAP DOSE
     Route: 042
     Dates: start: 20101130

REACTIONS (9)
  - Pyrexia [Not Recovered/Not Resolved]
  - Rib fracture [Not Recovered/Not Resolved]
  - Fall [Unknown]
  - Foot deformity [Unknown]
  - Diarrhoea [Not Recovered/Not Resolved]
  - Foot operation [Unknown]
  - Thermal burn [Not Recovered/Not Resolved]
  - Blood pressure decreased [Not Recovered/Not Resolved]
  - Nasopharyngitis [Not Recovered/Not Resolved]

NARRATIVE: CASE EVENT DATE: 201207
